FAERS Safety Report 15731858 (Version 1)
Quarter: 2018Q4

REPORT INFORMATION
  Report Type: Spontaneous
  Country: US (occurrence: US)
  Receive Date: 20181217
  Receipt Date: 20181217
  Transmission Date: 20190205
  Serious: No
  Sender: FDA-Public Use
  Company Number: US-SA-2018SA343918

PATIENT
  Sex: Male

DRUGS (1)
  1. DUPIXENT [Suspect]
     Active Substance: DUPILUMAB
     Indication: DERMATITIS ATOPIC
     Dosage: 300 MG, QOW
     Route: 058
     Dates: start: 201804

REACTIONS (9)
  - Lacrimation increased [Unknown]
  - Eyelid margin crusting [Unknown]
  - Conjunctivitis [Unknown]
  - Product dose omission [Unknown]
  - Skin exfoliation [Unknown]
  - Eye discharge [Unknown]
  - Vision blurred [Unknown]
  - Dry eye [Unknown]
  - Pruritus [Unknown]
